FAERS Safety Report 6905654-3 (Version None)
Quarter: 2010Q3

REPORT INFORMATION
  Report Type: 
  Country: None (occurrence: None)
  Receive Date: 20100804
  Receipt Date: 20100730
  Transmission Date: 20110219
  Serious: Yes (Death, Hospitalization)
  Sender: FDA-Public Use
  Company Number: PK-BRISTOL-MYERS SQUIBB COMPANY-15211790

PATIENT
  Age: 8 Year
  Sex: Male

DRUGS (2)
  1. AMPHOTERICIN B [Suspect]
     Indication: VISCERAL LEISHMANIASIS
  2. MILTEFOSINE [Suspect]
     Indication: VISCERAL LEISHMANIASIS

REACTIONS (4)
  - HYPERSENSITIVITY [None]
  - HYPOKALAEMIA [None]
  - NOSOCOMIAL INFECTION [None]
  - THROMBOCYTOPENIA [None]
